FAERS Safety Report 4853341-8 (Version None)
Quarter: 2005Q4

REPORT INFORMATION
  Report Type: 
  Country: None (occurrence: None)
  Receive Date: 20051212
  Receipt Date: 20051205
  Transmission Date: 20060501
  Serious: Yes (Hospitalization)
  Sender: FDA-Public Use
  Company Number: THQ2005A00259

PATIENT
  Age: 69 Year
  Sex: Female

DRUGS (4)
  1. LANSOPRAZOLE [Suspect]
     Indication: HEPATIC CIRRHOSIS
     Dosage: (1 IN 1 D), PER ORAL
     Route: 048
     Dates: start: 20040901, end: 20041001
  2. ZOCOR [Suspect]
     Indication: HYPERLIPIDAEMIA
     Dosage: 20 MG (20 MG, 1 IN 1 D), PER ORAL
     Route: 048
     Dates: start: 20010101
  3. CALCICHEW-D3 (LEVOKIT CA) [Concomitant]
  4. SPIRONOLACTONE [Concomitant]

REACTIONS (3)
  - ADRENAL ADENOMA [None]
  - PETECHIAE [None]
  - TOXIC EPIDERMAL NECROLYSIS [None]
